FAERS Safety Report 25644618 (Version 1)
Quarter: 2025Q3

REPORT INFORMATION
  Report Type: Spontaneous
  Country: CN (occurrence: CN)
  Receive Date: 20250805
  Receipt Date: 20250805
  Transmission Date: 20251020
  Serious: Yes (Hospitalization)
  Sender: PFIZER
  Company Number: CN-PFIZER INC-PV202500092750

PATIENT
  Age: 36 Year
  Sex: Male

DRUGS (3)
  1. CYTARABINE [Suspect]
     Active Substance: CYTARABINE
     Indication: Acute myeloid leukaemia
     Dosage: 0.1 G, 2X/DAY
     Route: 041
     Dates: start: 20250709, end: 20250715
  2. NETUPITANT AND PALONOSETRON HYDROCHLORIDE [Concomitant]
     Indication: Vomiting
     Dates: start: 20250709
  3. OMEPRAZOLE [Concomitant]
     Active Substance: OMEPRAZOLE
     Indication: Gastrointestinal disorder
     Route: 041
     Dates: start: 202507

REACTIONS (8)
  - Myelosuppression [Recovering/Resolving]
  - Vomiting [Recovering/Resolving]
  - Rash erythematous [Recovering/Resolving]
  - Infection [Recovering/Resolving]
  - Palpitations [Recovering/Resolving]
  - Nausea [Recovering/Resolving]
  - Rash pruritic [Recovering/Resolving]
  - Oral blood blister [Unknown]

NARRATIVE: CASE EVENT DATE: 20250701
